FAERS Safety Report 12321990 (Version 1)
Quarter: 2016Q2

REPORT INFORMATION
  Report Type: Spontaneous
  Country: US (occurrence: None)
  Receive Date: 20160429
  Receipt Date: 20160429
  Transmission Date: 20160815
  Serious: Yes (Hospitalization)
  Sender: FDA-Public Use
  Company Number: None

PATIENT
  Age: 54 Year
  Sex: Male

DRUGS (4)
  1. SODIUM CHLORIDE. [Concomitant]
     Active Substance: SODIUM CHLORIDE
  2. PULMOZYME [Concomitant]
     Active Substance: DORNASE ALFA
  3. CEFTAZIDIME 1 GRAM SANDOZ [Suspect]
     Active Substance: CEFTAZIDIME
     Indication: CYSTIC FIBROSIS
     Dosage: 1 GRAM BID NEB
     Dates: start: 20150904
  4. LEVALBUTEROL. [Concomitant]
     Active Substance: LEVALBUTEROL

REACTIONS (2)
  - Disease complication [None]
  - Cystic fibrosis [None]

NARRATIVE: CASE EVENT DATE: 20160425
